FAERS Safety Report 9590648 (Version 1)
Quarter: 2013Q4

REPORT INFORMATION
  Report Type: Spontaneous
  Country: US (occurrence: US)
  Receive Date: 20131003
  Receipt Date: 20131003
  Transmission Date: 20140711
  Serious: No
  Sender: FDA-Public Use
  Company Number: US-AMGEN-USASP2012078195

PATIENT
  Age: 59 Year
  Sex: Female

DRUGS (16)
  1. ENBREL [Suspect]
     Indication: PSORIATIC ARTHROPATHY
     Dosage: 50 MG, QWK
     Route: 058
  2. OXYCODON [Concomitant]
     Dosage: 5 MG, UNK
  3. FIORICET [Concomitant]
     Dosage: UNK
  4. PERCOCET                           /00446701/ [Concomitant]
     Dosage: 7.5-325 M
  5. CELEXA                             /00582602/ [Concomitant]
     Dosage: 10 MG, UNK
  6. NOVOLOG [Concomitant]
     Dosage: 70/30
  7. ZOFRAN                             /00955301/ [Concomitant]
     Dosage: 4 MG, UNK
  8. XANAX [Concomitant]
     Dosage: 1 MG, UNK
  9. MOBIC [Concomitant]
     Dosage: 15 MG, UNK
  10. ANTIVERT                           /00007101/ [Concomitant]
     Dosage: 12.5 MG, UNK
  11. AMBIEN [Concomitant]
     Dosage: 10 MG, UNK
  12. BENICAR [Concomitant]
     Dosage: 20 MG, UNK
  13. ABILIFY [Concomitant]
     Dosage: 20 MG, UNK
  14. CLONIDINE [Concomitant]
     Dosage: 0.1 MG, UNK
  15. ADDERALL [Concomitant]
     Dosage: 10 MG, UNK
  16. VITAMIN D                          /00107901/ [Concomitant]
     Dosage: 50000 UNIT, UNK

REACTIONS (2)
  - Injection site bruising [Recovering/Resolving]
  - Injection site pain [Recovering/Resolving]
